FAERS Safety Report 7520164-0 (Version None)
Quarter: 2011Q2

REPORT INFORMATION
  Report Type: 
  Country: None (occurrence: None)
  Receive Date: 20110602
  Receipt Date: 20110524
  Transmission Date: 20111010
  Serious: Yes (Other)
  Sender: FDA-Public Use
  Company Number: JP-B.I. PHARMACEUTICALS,INC./RIDGEFIELD-2011-BP-13861NB

PATIENT
  Age: 77 Year
  Sex: Male

DRUGS (6)
  1. PRADAXA [Suspect]
     Indication: ATRIAL FIBRILLATION
     Dosage: 150 MG
     Route: 048
     Dates: start: 20110512, end: 20110523
  2. TENORMIN [Suspect]
     Indication: HYPERTENSION
     Dosage: 50 MG
     Route: 048
  3. DIOVAN [Suspect]
     Indication: HYPERTENSION
     Dosage: 20 MG
     Route: 048
  4. ALLELOCK [Concomitant]
     Indication: HYPERSENSITIVITY
     Dosage: 5 MG
     Route: 048
  5. FERO-GRADUMET [Concomitant]
     Indication: ANAEMIA
     Dosage: 210 MG
     Route: 065
     Dates: start: 20110503
  6. ATENOLOL [Suspect]
     Indication: HYPERTENSION
     Dosage: 25 MG
     Route: 048

REACTIONS (1)
  - CEREBRAL INFARCTION [None]
